FAERS Safety Report 13803321 (Version 3)
Quarter: 2017Q3

REPORT INFORMATION
  Report Type: Report from Study
  Country: CH (occurrence: CH)
  Receive Date: 20170728
  Receipt Date: 20170824
  Transmission Date: 20171127
  Serious: Yes (Other)
  Sender: FDA-Public Use
  Company Number: CH-ROCHE-1964734

PATIENT
  Age: 62 Year

DRUGS (2)
  1. BLINDED IBRUTINIB [Suspect]
     Active Substance: IBRUTINIB
     Indication: B-CELL LYMPHOMA
     Route: 048
     Dates: start: 20161221, end: 20170616
  2. RITUXIMAB. [Suspect]
     Active Substance: RITUXIMAB
     Indication: B-CELL LYMPHOMA
     Route: 042
     Dates: start: 20170104, end: 20170516

REACTIONS (1)
  - Neoplasm malignant [Recovered/Resolved with Sequelae]

NARRATIVE: CASE EVENT DATE: 20170706
